FAERS Safety Report 4631627-X (Version None)
Quarter: 2005Q2

REPORT INFORMATION
  Report Type: 
  Country: None (occurrence: None)
  Receive Date: 20050407
  Receipt Date: 20050330
  Transmission Date: 20051028
  Serious: Yes (Other)
  Sender: FDA-Public Use
  Company Number: 2005SE01889

PATIENT
  Age: 17 Year
  Sex: Female

DRUGS (4)
  1. SEROQUEL [Suspect]
     Dosage: 1200 MG DAILY
     Dates: start: 20050317, end: 20050321
  2. SEROQUEL [Suspect]
     Dosage: 1000 MG DAILY
     Dates: start: 20050321, end: 20050322
  3. SEROQUEL [Suspect]
     Dosage: 800 MG DAILY
     Dates: start: 20050322, end: 20050330
  4. NOZINAN [Concomitant]

REACTIONS (3)
  - DRUG INEFFECTIVE [None]
  - LEUKOPENIA [None]
  - NEUTROPENIA [None]
